FAERS Safety Report 10636961 (Version 1)
Quarter: 2014Q4

REPORT INFORMATION
  Report Type: Spontaneous
  Country: CH (occurrence: CH)
  Receive Date: 20141208
  Receipt Date: 20141208
  Transmission Date: 20150529
  Serious: Yes (Hospitalization, Disabling)
  Sender: FDA-Public Use
  Company Number: CH-ROCHE-1502766

PATIENT
  Age: 26 Year
  Sex: Male

DRUGS (18)
  1. SANDIMMUNE [Suspect]
     Active Substance: CYCLOSPORINE
     Indication: ALLOGENIC BONE MARROW TRANSPLANTATION THERAPY
     Route: 048
     Dates: start: 200606, end: 200803
  2. TEGRETOL [Concomitant]
     Active Substance: CARBAMAZEPINE
  3. NOPIL [Concomitant]
     Active Substance: SULFAMETHOXAZOLE\TRIMETHOPRIM
  4. BUSULFAN [Concomitant]
     Active Substance: BUSULFAN
  5. KEPPRA [Concomitant]
     Active Substance: LEVETIRACETAM
  6. PREDNISON [Concomitant]
     Active Substance: PREDNISONE
  7. PANTOZOL (SWITZERLAND) [Suspect]
     Active Substance: PANTOPRAZOLE SODIUM
     Indication: PRODUCT USED FOR UNKNOWN INDICATION
     Route: 048
     Dates: start: 201411
  8. ATORVASTATIN [Concomitant]
     Active Substance: ATORVASTATIN
  9. ACIDUM FOLICUM [Concomitant]
     Active Substance: FOLIC ACID
  10. FAMVIR [Concomitant]
     Active Substance: FAMCICLOVIR
  11. FRAGMIN [Concomitant]
     Active Substance: DALTEPARIN SODIUM
  12. ROCALTROL [Concomitant]
     Active Substance: CALCITRIOL
  13. ACTEMRA [Suspect]
     Active Substance: TOCILIZUMAB
     Indication: GRAFT VERSUS HOST DISEASE
     Dosage: INFUSION AMPOULES, DRY
     Route: 042
     Dates: start: 201310, end: 20141016
  14. PRADIF [Concomitant]
  15. ENDOXAN [Concomitant]
     Active Substance: CYCLOPHOSPHAMIDE
  16. RANITIDINE [Concomitant]
     Active Substance: RANITIDINE\RANITIDINE HYDROCHLORIDE
  17. KLISTIER [Concomitant]
  18. MAGNESIOCARD [Concomitant]
     Active Substance: MAGNESIUM ASPARTATE HYDROCHLORIDE

REACTIONS (4)
  - Granuloma [Unknown]
  - Tubulointerstitial nephritis [Recovered/Resolved]
  - Nephropathy toxic [Not Recovered/Not Resolved]
  - Acute kidney injury [Recovered/Resolved]

NARRATIVE: CASE EVENT DATE: 200804
